FAERS Safety Report 10448497 (Version 1)
Quarter: 2014Q3

REPORT INFORMATION
  Report Type: Spontaneous
  Country: DE (occurrence: DE)
  Receive Date: 20140911
  Receipt Date: 20140911
  Transmission Date: 20150326
  Serious: Yes (Other)
  Sender: FDA-Public Use
  Company Number: PHHY2014DE114767

PATIENT
  Sex: Female

DRUGS (5)
  1. SIRDALUD [Suspect]
     Active Substance: TIZANIDINE
     Indication: MUSCLE TIGHTNESS
     Dosage: 0.5 DF (2MG) QD
     Route: 048
     Dates: start: 20140812, end: 201408
  2. VALSARTAN. [Interacting]
     Active Substance: VALSARTAN
     Dosage: 0.5 DF (40MG) BID
     Route: 048
  3. URAPIDIL [Interacting]
     Active Substance: URAPIDIL
     Dosage: 1 DF (30MG) BID
     Route: 048
  4. DILTIAZEM [Interacting]
     Active Substance: DILTIAZEM
     Dosage: 1 DF (90MG) BID
     Route: 048
  5. SIRDALUD [Interacting]
     Active Substance: TIZANIDINE
     Dosage: 1 DF (2MG) QD
     Route: 048
     Dates: start: 201408

REACTIONS (5)
  - Drug interaction [Not Recovered/Not Resolved]
  - Dizziness [Not Recovered/Not Resolved]
  - Sleep disorder [Not Recovered/Not Resolved]
  - Wrong technique in drug usage process [Unknown]
  - Blood pressure fluctuation [Not Recovered/Not Resolved]
